FAERS Safety Report 6712119-0 (Version None)
Quarter: 2010Q2

REPORT INFORMATION
  Report Type: 
  Country: None (occurrence: None)
  Receive Date: 20100505
  Receipt Date: 20100423
  Transmission Date: 20101027
  Serious: Yes (Hospitalization)
  Sender: FDA-Public Use
  Company Number: GB-PFIZER INC-2010033602

PATIENT
  Sex: Female
  Weight: 94.3 kg

DRUGS (4)
  1. DTIC-DOME [Suspect]
     Indication: METASTATIC MALIGNANT MELANOMA
     Dosage: 7.5 MG, CYCLIC, DAY 1
     Route: 042
     Dates: start: 20100216, end: 20100216
  2. AMLODIPINE BESYLATE [Concomitant]
     Indication: HYPERTENSION
     Dosage: 5 MG, 1X/DAY
     Route: 048
     Dates: start: 20100223, end: 20100315
  3. RAMIPRIL [Concomitant]
     Indication: HYPERTENSION
     Dosage: 1.25 MG, 1X/DAY
     Route: 048
     Dates: start: 20100322
  4. HORMONIN [Concomitant]
     Indication: POSTMENOPAUSE
     Dosage: 1 DF, 1X/DAY

REACTIONS (2)
  - BUNDLE BRANCH BLOCK LEFT [None]
  - DEVICE RELATED INFECTION [None]
